FAERS Safety Report 5386421-1 (Version None)
Quarter: 2007Q3

REPORT INFORMATION
  Report Type: 
  Country: None (occurrence: None)
  Receive Date: 20070710
  Receipt Date: 20070710
  Transmission Date: 20080115
  Serious: Yes (Hospitalization)
  Sender: FDA-Public Use
  Company Number: None

PATIENT
  Sex: Male
  Weight: 146.9654 kg

DRUGS (1)
  1. REVLIMID [Suspect]
     Indication: T-CELL TYPE ACUTE LEUKAEMIA
     Dosage: 25 MG DAILY DAYS 1-21 PO
     Route: 048
     Dates: start: 20070612, end: 20070702

REACTIONS (10)
  - BODY TEMPERATURE INCREASED [None]
  - DISORIENTATION [None]
  - FATIGUE [None]
  - GINGIVAL BLEEDING [None]
  - GINGIVAL SWELLING [None]
  - NAUSEA [None]
  - ORAL PAIN [None]
  - SOMNOLENCE [None]
  - THINKING ABNORMAL [None]
  - VOMITING [None]
